FAERS Safety Report 6771310-8 (Version None)
Quarter: 2010Q2

REPORT INFORMATION
  Report Type: 
  Country: None (occurrence: None)
  Receive Date: 20100616
  Receipt Date: 20100527
  Transmission Date: 20101027
  Serious: Yes (Other)
  Sender: FDA-Public Use
  Company Number: JP-ALLERGAN-1007741US

PATIENT
  Age: 62 Year
  Sex: Male

DRUGS (4)
  1. LUMIGAN [Suspect]
     Indication: OPEN ANGLE GLAUCOMA
     Dosage: 1 GTT, QD
     Route: 047
     Dates: start: 20091121
  2. LUMIGAN [Suspect]
     Indication: GLAUCOMA
  3. CARBAZOCHROME SODIUM SULFONATE [Concomitant]
     Dosage: UNK
     Dates: start: 20090715
  4. KALLIDINOGENASE [Concomitant]
     Dosage: UNK
     Dates: start: 20090715

REACTIONS (1)
  - VITREOUS HAEMORRHAGE [None]
